FAERS Safety Report 20020808 (Version 2)
Quarter: 2021Q4

REPORT INFORMATION
  Report Type: Report from Study
  Country: US (occurrence: US)
  Receive Date: 20211101
  Receipt Date: 20211230
  Transmission Date: 20220304
  Serious: Yes (Death)
  Sender: FDA-Public Use
  Company Number: US-NOVARTISPH-NVSC2021US248897

PATIENT
  Age: 80 Year
  Sex: Male

DRUGS (1)
  1. ARZERRA [Suspect]
     Active Substance: OFATUMUMAB
     Indication: Product used for unknown indication
     Dosage: 2000 MG, QW
     Route: 065
     Dates: start: 20210126

REACTIONS (1)
  - Death [Fatal]

NARRATIVE: CASE EVENT DATE: 20210508
